FAERS Safety Report 5829476 (Version 6)
Quarter: 2014Q1

REPORT INFORMATION
  Report Type: Spontaneous
  Country: US (occurrence: US)
  Receive Date: 20050701
  Receipt Date: 20140127
  Transmission Date: 20141002
  Serious: Yes (Hospitalization, Disabling)
  Sender: FDA-Public Use
  Company Number: US-ROCHE-408674

PATIENT
  Age: 20 Year
  Sex: Male
  Weight: 73.5 kg

DRUGS (1)
  1. ACCUTANE [Suspect]
     Indication: ACNE
     Route: 048
     Dates: start: 20031008, end: 200404

REACTIONS (7)
  - Gastrointestinal disorder [Unknown]
  - Inflammatory bowel disease [Unknown]
  - Colitis [Unknown]
  - Colitis ulcerative [Unknown]
  - Rectal haemorrhage [Unknown]
  - Intestinal haemorrhage [Unknown]
  - Anaemia [Recovered/Resolved]
